FAERS Safety Report 25621031 (Version 1)
Quarter: 2025Q3

REPORT INFORMATION
  Report Type: Spontaneous
  Country: US (occurrence: US)
  Receive Date: 20250730
  Receipt Date: 20250730
  Transmission Date: 20251021
  Serious: No
  Sender: SANDOZ
  Company Number: US-SANDOZ-SDZ2025US054506

PATIENT

DRUGS (1)
  1. ESTRADIOL [Suspect]
     Active Substance: ESTRADIOL
     Indication: Product used for unknown indication
     Dosage: ESTRADIOL 0.025 PATCH, QW (TWO PATCHES AT ONCE) (ESTRADIOL TRANSDERMAL PATCH, 0.025 MG / 1 10)
     Route: 062

REACTIONS (2)
  - Circumstance or information capable of leading to device use error [Unknown]
  - Product adhesion issue [Unknown]
